FAERS Safety Report 9156354 (Version 1)
Quarter: 2013Q1

REPORT INFORMATION
  Report Type: Spontaneous
  Country: US (occurrence: None)
  Receive Date: 20130308
  Receipt Date: 20130308
  Transmission Date: 20140127
  Serious: Yes (Other)
  Sender: FDA-Public Use
  Company Number: None

PATIENT
  Age: 50 Year
  Sex: Female

DRUGS (1)
  1. XELODA [Suspect]
     Dosage: TAKE 3 TABLETS BY MOUTH EVERY MORNING AND 3 TABLETS EVERY EVENING FOR 1 WEEK ON, 1 WEEK OFF
     Route: 048
     Dates: start: 20130306

REACTIONS (1)
  - Blister [None]
